FAERS Safety Report 21829284 (Version 3)
Quarter: 2025Q2

REPORT INFORMATION
  Report Type: Spontaneous
  Country: DE (occurrence: DE)
  Receive Date: 20230106
  Receipt Date: 20250604
  Transmission Date: 20250717
  Serious: Yes (Death, Life-Threatening, Hospitalization, Other)
  Sender: AUROBINDO
  Company Number: DE-TORRENT-00023926

PATIENT
  Age: 16 Year
  Sex: Male

DRUGS (13)
  1. VORICONAZOLE [Interacting]
     Active Substance: VORICONAZOLE
     Indication: Fusarium infection
     Dosage: 6 MILLIGRAM/KILOGRAM, TWO TIMES A DAY
     Route: 042
  2. VORICONAZOLE [Interacting]
     Active Substance: VORICONAZOLE
     Indication: Cytomegalovirus infection
     Dosage: 4 MILLIGRAM/KILOGRAM, TWO TIMES A DAY
     Route: 042
  3. VORICONAZOLE [Interacting]
     Active Substance: VORICONAZOLE
     Route: 042
  4. AMPHOTERICIN B [Suspect]
     Active Substance: AMPHOTERICIN B
     Indication: Fusarium infection
     Route: 065
  5. AMPHOTERICIN B [Suspect]
     Active Substance: AMPHOTERICIN B
     Route: 065
  6. TACROLIMUS [Interacting]
     Active Substance: TACROLIMUS
     Indication: Prophylaxis against graft versus host disease
     Route: 065
  7. AMPHOTERICIN B [Concomitant]
     Active Substance: AMPHOTERICIN B
     Indication: Cytomegalovirus infection
     Dosage: 5 MILLIGRAM/KILOGRAM, ONCE A DAY
     Route: 065
  8. AMPHOTERICIN B [Concomitant]
     Active Substance: AMPHOTERICIN B
     Dosage: 3 MILLIGRAM/KILOGRAM, ONCE A DAY
     Route: 065
  9. FOSCARNET [Concomitant]
     Active Substance: FOSCARNET
     Indication: Cytomegalovirus infection
     Route: 042
  10. HEPARIN [Concomitant]
     Active Substance: HEPARIN SODIUM
     Indication: Product used for unknown indication
     Route: 065
  11. METHOTREXATE [Concomitant]
     Active Substance: METHOTREXATE
     Indication: Prophylaxis against graft versus host disease
     Dosage: 10 MILLIGRAM PER CUBIC METRE, ONCE A DAY
     Route: 065
  12. METHOTREXATE [Concomitant]
     Active Substance: METHOTREXATE
     Dosage: 10 MILLIGRAM/SQ. METER, ONCE A DAY
     Route: 065
  13. MICAFUNGIN [Concomitant]
     Active Substance: MICAFUNGIN SODIUM
     Indication: Cytomegalovirus infection
     Dosage: 50 MILLIGRAM, ONCE A DAY
     Route: 065

REACTIONS (23)
  - Cardiac ventricular thrombosis [Fatal]
  - Fungal endocarditis [Fatal]
  - Drug ineffective [Fatal]
  - Uraemic encephalopathy [Fatal]
  - Organ failure [Fatal]
  - Splenic lesion [Fatal]
  - Capillary leak syndrome [Fatal]
  - Cerebral ischaemia [Fatal]
  - Hemiparesis [Not Recovered/Not Resolved]
  - Skin mass [Recovered/Resolved]
  - Drug interaction [Unknown]
  - Circulatory collapse [Recovered/Resolved]
  - Pyrexia [Recovered/Resolved]
  - Biliary tract disorder [Recovered/Resolved]
  - General physical health deterioration [Not Recovered/Not Resolved]
  - Eating disorder [Unknown]
  - Hypovolaemic shock [Unknown]
  - Splenic rupture [Recovered/Resolved]
  - Embolic cerebral infarction [Unknown]
  - Drug interaction [Unknown]
  - Inflammatory marker increased [Unknown]
  - Pulmonary oedema [Unknown]
  - Acute kidney injury [Unknown]
